FAERS Safety Report 18756492 (Version 1)
Quarter: 2021Q1

REPORT INFORMATION
  Report Type: Spontaneous
  Country: CN (occurrence: CN)
  Receive Date: 20210119
  Receipt Date: 20210119
  Transmission Date: 20210419
  Serious: Yes (Other)
  Sender: FDA-Public Use
  Company Number: CN-PFIZER INC-2021026310

PATIENT
  Age: 4 Year
  Sex: Male
  Weight: 20 kg

DRUGS (1)
  1. SOLU?MEDROL [Suspect]
     Active Substance: METHYLPREDNISOLONE SODIUM SUCCINATE
     Indication: BRONCHITIS
     Dosage: 40 MG, 1X/DAY
     Route: 041
     Dates: start: 20201216, end: 20201216

REACTIONS (3)
  - Urticaria [Recovering/Resolving]
  - Pruritus [Recovering/Resolving]
  - Off label use [Unknown]

NARRATIVE: CASE EVENT DATE: 20201216
